FAERS Safety Report 12198252 (Version 2)
Quarter: 2016Q2

REPORT INFORMATION
  Report Type: Spontaneous
  Country: US (occurrence: US)
  Receive Date: 20160322
  Receipt Date: 20160426
  Transmission Date: 20160815
  Serious: No
  Sender: FDA-Public Use
  Company Number: US-JNJFOC-20160207501

PATIENT
  Age: 23 Year
  Sex: Male
  Weight: 68.04 kg

DRUGS (14)
  1. CELEXA [Suspect]
     Active Substance: CITALOPRAM HYDROBROMIDE
     Indication: PRODUCT USED FOR UNKNOWN INDICATION
     Route: 065
  2. RISPERDAL [Suspect]
     Active Substance: RISPERIDONE
     Indication: PRODUCT USED FOR UNKNOWN INDICATION
     Dosage: STRENGTH-0.5MG AND 4MG(TABLET SPLIT IN HALF) DOSE: 0.25MG AND 2MG BOTH TWICE DAILY
     Route: 048
  3. VITAMIN D [Concomitant]
     Active Substance: CHOLECALCIFEROL
     Indication: VITAMIN D DEFICIENCY
     Route: 065
  4. RISPERDAL [Suspect]
     Active Substance: RISPERIDONE
     Indication: PRODUCT USED FOR UNKNOWN INDICATION
     Dosage: STARTED 13 YEARS AGO
     Route: 048
  5. PATRIOT RISPERIDONE [Suspect]
     Active Substance: RISPERIDONE
     Indication: PRODUCT USED FOR UNKNOWN INDICATION
     Dosage: DOSE: 0.25MG AND 2MG TWICE DAILY, STARTED 2-3 YEARS AGO
     Route: 048
  6. RISPERDAL [Suspect]
     Active Substance: RISPERIDONE
     Indication: PRODUCT USED FOR UNKNOWN INDICATION
     Dosage: DOSE: 0.25MG AND 2MG BOTH TWICE DAILY, STARTED SEVERAL YEARS AGO
     Route: 048
  7. PATRIOT RISPERIDONE [Suspect]
     Active Substance: RISPERIDONE
     Indication: PRODUCT USED FOR UNKNOWN INDICATION
     Dosage: STRENGTH-0.5MG AND 4MG(TABLET SPLIT IN HALF) ??DOSE: 0.25MG AND 2MG TWICE DAILY
     Route: 048
     Dates: end: 201508
  8. ADDERALL [Concomitant]
     Active Substance: AMPHETAMINE ASPARTATE\AMPHETAMINE SULFATE\DEXTROAMPHETAMINE SACCHARATE\DEXTROAMPHETAMINE SULFATE
     Route: 065
  9. RISPERDAL [Suspect]
     Active Substance: RISPERIDONE
     Indication: PRODUCT USED FOR UNKNOWN INDICATION
     Dosage: STRENGTH-0.5MG AND 4MG(TABLET SPLIT IN HALF) DOSE: 0.25MG AND 2MG BOTH TWICE DAILY
     Route: 048
     Dates: start: 201508, end: 2016
  10. PATRIOT RISPERIDONE [Suspect]
     Active Substance: RISPERIDONE
     Indication: PRODUCT USED FOR UNKNOWN INDICATION
     Dosage: STRENGTH-0.5MG AND 4MG(TABLET SPLIT IN HALF) ??DOSE: 0.25MG AND 2MG TWICE DAILY, STARTED 3 WEEKS AGO
     Route: 048
     Dates: start: 2016
  11. LITHIUM. [Suspect]
     Active Substance: LITHIUM
     Indication: PRODUCT USED FOR UNKNOWN INDICATION
     Route: 065
     Dates: end: 201503
  12. VYVANSE [Concomitant]
     Active Substance: LISDEXAMFETAMINE DIMESYLATE
     Route: 065
  13. STRATTERA [Concomitant]
     Active Substance: ATOMOXETINE HYDROCHLORIDE
     Route: 065
  14. VITAMIN B [Concomitant]
     Active Substance: VITAMIN B
     Indication: GENETIC COUNSELLING
     Route: 065

REACTIONS (15)
  - Belligerence [Recovering/Resolving]
  - Condition aggravated [Unknown]
  - Disturbance in social behaviour [Unknown]
  - Fear [Unknown]
  - Epistaxis [Unknown]
  - Urticaria [Unknown]
  - Paranoia [Recovering/Resolving]
  - Cognitive disorder [Unknown]
  - Wrong technique in product usage process [Unknown]
  - Abnormal behaviour [Recovered/Resolved]
  - Adverse drug reaction [Unknown]
  - Stress [Unknown]
  - Sexually inappropriate behaviour [Unknown]
  - Aggression [Unknown]
  - Agitation [Unknown]

NARRATIVE: CASE EVENT DATE: 2015
